FAERS Safety Report 16158411 (Version 1)
Quarter: 2019Q2

REPORT INFORMATION
  Report Type: Spontaneous
  Country: US (occurrence: US)
  Receive Date: 20190403
  Receipt Date: 20190403
  Transmission Date: 20190711
  Serious: No
  Sender: FDA-Public Use
  Company Number: None

PATIENT
  Age: 2 Year
  Sex: Male

DRUGS (3)
  1. ALBUTEROL 2.5MG/3ML NEBS [Concomitant]
  2. CLARITIN SYRUP [Concomitant]
  3. BETHKIS [Suspect]
     Active Substance: TOBRAMYCIN
     Indication: INFECTION PROPHYLAXIS
     Route: 055

REACTIONS (2)
  - Upper respiratory tract infection [None]
  - Pneumonia [None]

NARRATIVE: CASE EVENT DATE: 20190403
